FAERS Safety Report 13823876 (Version 12)
Quarter: 2021Q4

REPORT INFORMATION
  Report Type: Spontaneous
  Country: US (occurrence: US)
  Receive Date: 20170802
  Receipt Date: 20211123
  Transmission Date: 20220303
  Serious: Yes (Other)
  Sender: FDA-Public Use
  Company Number: US-PFIZER INC-2017331290

PATIENT
  Age: 78 Year
  Sex: Female
  Weight: 82 kg

DRUGS (10)
  1. XELJANZ [Suspect]
     Active Substance: TOFACITINIB CITRATE
     Indication: Rheumatoid arthritis
     Dosage: 5 MG, 2X/DAY
     Route: 048
     Dates: start: 20161001
  2. XELJANZ [Suspect]
     Active Substance: TOFACITINIB CITRATE
     Dosage: 5 MG, 2X/DAY [TWICE A DAY, BY MOUTH]
     Route: 048
     Dates: end: 2020
  3. ATORVASTATIN [Concomitant]
     Active Substance: ATORVASTATIN
     Indication: Blood cholesterol increased
     Dosage: UNK
     Dates: start: 2016
  4. FOLIC ACID [Concomitant]
     Active Substance: FOLIC ACID
     Dosage: UNK
  5. GABAPENTIN [Concomitant]
     Active Substance: GABAPENTIN
     Indication: Restless legs syndrome
     Dosage: 1 DF, 1X/DAY (ONE CAPSULE AT NIGHT)
  6. HUMIRA [Concomitant]
     Active Substance: ADALIMUMAB
     Dosage: UNK
     Dates: end: 20161001
  7. LIMBREL [Concomitant]
     Active Substance: DIETARY SUPPLEMENT\FLAVOCOXID
     Dosage: UNK
     Dates: end: 20161001
  8. METHOTREXATE [Concomitant]
     Active Substance: METHOTREXATE
     Indication: Rheumatoid arthritis
     Dosage: UNK
     Dates: end: 20161001
  9. METHOTREXATE [Concomitant]
     Active Substance: METHOTREXATE
     Dosage: 8 ML, UNK
     Dates: start: 20170804
  10. METHOTREXATE [Concomitant]
     Active Substance: METHOTREXATE
     Dosage: 0.6 MG, WEEKLY

REACTIONS (5)
  - Upper limb fracture [Unknown]
  - White blood cell count decreased [Not Recovered/Not Resolved]
  - Fall [Unknown]
  - Impaired healing [Unknown]
  - Fructose intolerance [Unknown]

NARRATIVE: CASE EVENT DATE: 20170717
